FAERS Safety Report 6801004-1 (Version None)
Quarter: 2010Q2

REPORT INFORMATION
  Report Type: 
  Country: None (occurrence: None)
  Receive Date: 20100629
  Receipt Date: 20100623
  Transmission Date: 20101027
  Serious: Yes (Other)
  Sender: FDA-Public Use
  Company Number: CA-BAXTER-2010BH013945

PATIENT
  Age: 19 Year
  Sex: Male

DRUGS (2)
  1. GAMMAGARD LIQUID [Suspect]
     Indication: DRUG USE FOR UNKNOWN INDICATION
     Route: 065
  2. PARENTERAL NUTRITION SOLUTION [Concomitant]

REACTIONS (2)
  - HEPATITIS A POSITIVE [None]
  - LIVER FUNCTION TEST ABNORMAL [None]
